FAERS Safety Report 6313037-2 (Version None)
Quarter: 2009Q3

REPORT INFORMATION
  Report Type: 
  Country: None (occurrence: None)
  Receive Date: 20090818
  Receipt Date: 20081006
  Transmission Date: 20100115
  Serious: No
  Sender: FDA-Public Use
  Company Number: US-BRISTOL-MYERS SQUIBB COMPANY-14359335

PATIENT
  Sex: Female

DRUGS (1)
  1. GLUCOVANCE [Suspect]
     Dosage: 1 DOSAGE FORM = 25/500 MG TABLETS

REACTIONS (3)
  - DIZZINESS [None]
  - HYPERGLYCAEMIA [None]
  - OBESITY [None]
